FAERS Safety Report 19800253 (Version 1)
Quarter: 2021Q3

REPORT INFORMATION
  Report Type: Spontaneous
  Country: US (occurrence: US)
  Receive Date: 20210908
  Receipt Date: 20210908
  Transmission Date: 20211014
  Serious: No
  Sender: FDA-Public Use
  Company Number: US-ESPERIONTHERAPEUTICS-2021USA01096

PATIENT
  Age: 7 Decade
  Sex: Male
  Weight: 81.63 kg

DRUGS (1)
  1. NEXLIZET [Suspect]
     Active Substance: BEMPEDOIC ACID\EZETIMIBE
     Indication: BLOOD CHOLESTEROL INCREASED
     Dosage: UNK
     Route: 048

REACTIONS (2)
  - Myalgia [Unknown]
  - Dysstasia [Unknown]
